FAERS Safety Report 23068150 (Version 1)
Quarter: 2023Q4

REPORT INFORMATION
  Report Type: Spontaneous
  Country: US (occurrence: None)
  Receive Date: 20231013
  Receipt Date: 20231013
  Transmission Date: 20240110
  Serious: Yes (Hospitalization)
  Sender: FDA-Public Use
  Company Number: None

PATIENT
  Sex: Female
  Weight: 70 kg

DRUGS (1)
  1. CARVYKTI [Suspect]
     Active Substance: CILTACABTAGENE AUTOLEUCEL
     Indication: Plasma cell myeloma
     Dates: start: 20230213, end: 20230213

REACTIONS (6)
  - Lymphocyte adoptive therapy [None]
  - Cytokine release syndrome [None]
  - Hepatic enzyme increased [None]
  - Procedural complication [None]
  - Cytopenia [None]
  - Acute kidney injury [None]
